FAERS Safety Report 9105252 (Version 1)
Quarter: 2013Q1

REPORT INFORMATION
  Report Type: Spontaneous
  Country: DE (occurrence: DE)
  Receive Date: 20130221
  Receipt Date: 20130221
  Transmission Date: 20140127
  Serious: Yes (Death)
  Sender: FDA-Public Use
  Company Number: DE-OTSUKA-004087

PATIENT
  Sex: Male

DRUGS (3)
  1. PLETAL [Suspect]
     Dosage: 100 MG, UNKNOWN
     Route: 048
     Dates: start: 20070323
  2. NAFTILONG [Concomitant]
     Dosage: 100 MG, UNKNOWN
     Route: 065
     Dates: start: 20070109
  3. OMEPRAZOLE [Concomitant]
     Dosage: 20 MG, UNKNOWN
     Route: 065
     Dates: start: 20070323

REACTIONS (1)
  - Death [Fatal]
